FAERS Safety Report 5785335-2 (Version None)
Quarter: 2008Q2

REPORT INFORMATION
  Report Type: 
  Country: None (occurrence: None)
  Receive Date: 20080624
  Receipt Date: 20080617
  Transmission Date: 20081010
  Serious: Yes (Other)
  Sender: FDA-Public Use
  Company Number: JP-MERCK-0805USA01018

PATIENT
  Age: 56 Year
  Sex: Male
  Weight: 68 kg

DRUGS (2)
  1. SINGULAIR [Suspect]
     Indication: SEASONAL ALLERGY
     Route: 048
     Dates: start: 20080323, end: 20080419
  2. HERBS (UNSPECIFIED) [Concomitant]
     Indication: PSORIASIS
     Route: 048
     Dates: start: 20080125, end: 20080419

REACTIONS (1)
  - LIVER FUNCTION TEST ABNORMAL [None]
